FAERS Safety Report 4435762-0 (Version None)
Quarter: 2004Q3

REPORT INFORMATION
  Report Type: 
  Country: None (occurrence: None)
  Receive Date: 20040826
  Receipt Date: 20040814
  Transmission Date: 20050211
  Serious: Yes (Other)
  Sender: FDA-Public Use
  Company Number: 2004051190

PATIENT
  Age: 15 Year
  Sex: Female

DRUGS (3)
  1. DILANTIN [Suspect]
     Indication: GRAND MAL CONVULSION
     Dosage: 200 MG (2 IN 1 D), ORAL
     Route: 048
     Dates: start: 20040425, end: 20040430
  2. OXCARBAZEPINE (OXCARBAZEPINE) [Suspect]
     Indication: CONVULSION
     Dosage: ORAL
     Route: 048
     Dates: start: 20031201, end: 20040601
  3. RISPERDAL [Suspect]
     Indication: ABNORMAL BEHAVIOUR
     Dosage: ORAL
     Route: 048

REACTIONS (6)
  - EOSINOPHIL PERCENTAGE INCREASED [None]
  - PARTIAL SEIZURES [None]
  - PYREXIA [None]
  - RASH ERYTHEMATOUS [None]
  - RASH GENERALISED [None]
  - RASH MACULAR [None]
